FAERS Safety Report 20357110 (Version 1)
Quarter: 2022Q1

REPORT INFORMATION
  Report Type: Spontaneous
  Country: US (occurrence: US)
  Receive Date: 20220120
  Receipt Date: 20220120
  Transmission Date: 20220423
  Serious: Yes (Hospitalization)
  Sender: FDA-Public Use
  Company Number: US-SA-SAC20220120000135

PATIENT
  Sex: Female

DRUGS (15)
  1. DUPIXENT [Suspect]
     Active Substance: DUPILUMAB
     Indication: Asthma
     Dosage: 300 MG, QOW
     Route: 058
  2. DUPIXENT [Suspect]
     Active Substance: DUPILUMAB
     Dosage: 300MG
  3. VALSARTAN [Suspect]
     Active Substance: VALSARTAN
     Dosage: 320 MG
  4. MELOXICAM [Suspect]
     Active Substance: MELOXICAM
     Dosage: 15 MG
  5. BACLOFEN [Suspect]
     Active Substance: BACLOFEN
     Dosage: UNK
  6. ARIPIPRAZOLE [Suspect]
     Active Substance: ARIPIPRAZOLE
     Dosage: TBD
  7. CARVEDILOL [Suspect]
     Active Substance: CARVEDILOL
     Dosage: 25 MG
  8. METFORMIN HYDROCHLORIDE [Suspect]
     Active Substance: METFORMIN HYDROCHLORIDE
     Dosage: UNK
  9. NORETHINDRONE [Suspect]
     Active Substance: NORETHINDRONE
  10. MEGESTROL ACETATE [Suspect]
     Active Substance: MEGESTROL ACETATE
     Dosage: UNK
  11. BUDESONIDE\FORMOTEROL\GLYCOPYRRONIUM [Suspect]
     Active Substance: BUDESONIDE\FORMOTEROL\GLYCOPYRRONIUM
     Dosage: UNK
  12. CHLORTHALIDONE [Suspect]
     Active Substance: CHLORTHALIDONE
     Dosage: 50 MG
  13. ASPIRIN [Suspect]
     Active Substance: ASPIRIN
     Dosage: 81 MG
  14. ESCITALOPRAM [Suspect]
     Active Substance: ESCITALOPRAM OXALATE
     Dosage: 20 MG
  15. CHOLECALCIFEROL [Suspect]
     Active Substance: CHOLECALCIFEROL
     Dosage: UNK

REACTIONS (7)
  - Fall [Unknown]
  - Fatigue [Unknown]
  - Oedema peripheral [Unknown]
  - Sinus operation [Unknown]
  - Mucous stools [Unknown]
  - Oxygen saturation abnormal [Unknown]
  - Blood pressure increased [Unknown]
